FAERS Safety Report 12403078 (Version 3)
Quarter: 2016Q3

REPORT INFORMATION
  Report Type: Report from Study
  Country: GB (occurrence: GB)
  Receive Date: 20160525
  Receipt Date: 20160815
  Transmission Date: 20161109
  Serious: Yes (Life-Threatening, Other)
  Sender: FDA-Public Use
  Company Number: GB-ABBVIE-16K-167-1632333-00

PATIENT
  Age: 48 Year
  Sex: Male

DRUGS (9)
  1. HUMIRA [Suspect]
     Active Substance: ADALIMUMAB
     Indication: PSORIASIS
     Route: 058
     Dates: start: 201110, end: 201310
  2. METHOTREXATE. [Suspect]
     Active Substance: METHOTREXATE
     Indication: PROPHYLAXIS
     Route: 048
     Dates: start: 200711, end: 201101
  3. METHOTREXATE. [Suspect]
     Active Substance: METHOTREXATE
     Indication: ADJUVANT THERAPY
     Route: 048
  4. RAMIPRIL. [Concomitant]
     Active Substance: RAMIPRIL
     Indication: HYPERTENSION
  5. CYCLOSPORIN A [Concomitant]
     Active Substance: CYCLOSPORINE
     Indication: PRODUCT USED FOR UNKNOWN INDICATION
     Dates: start: 200909, end: 201006
  6. ETANERCEPT [Suspect]
     Active Substance: ETANERCEPT
     Indication: PRODUCT USED FOR UNKNOWN INDICATION
     Route: 065
     Dates: start: 201404, end: 201412
  7. METHOTREXATE. [Suspect]
     Active Substance: METHOTREXATE
     Route: 048
     Dates: start: 201503
  8. HUMIRA [Suspect]
     Active Substance: ADALIMUMAB
     Indication: PSORIATIC ARTHROPATHY
     Route: 058
     Dates: start: 201503, end: 20160518
  9. FOLIC ACID. [Concomitant]
     Active Substance: FOLIC ACID
     Indication: ADJUVANT THERAPY
     Route: 048

REACTIONS (13)
  - Portal hypertension [Unknown]
  - Diplopia [Unknown]
  - Hepatocellular injury [Unknown]
  - Lymphadenopathy [Unknown]
  - VIth nerve paralysis [Unknown]
  - Blood immunoglobulin G increased [Unknown]
  - VIth nerve paralysis [Unknown]
  - Glomerular filtration rate abnormal [Unknown]
  - Nasopharyngeal cancer [Unknown]
  - Brain neoplasm [Unknown]
  - Pulmonary mass [Unknown]
  - Drug effect decreased [Unknown]
  - Monocyte count increased [Unknown]

NARRATIVE: CASE EVENT DATE: 2016
